FAERS Safety Report 17762597 (Version 1)
Quarter: 2020Q2

REPORT INFORMATION
  Report Type: Report from Study
  Country: CA (occurrence: CA)
  Receive Date: 20200508
  Receipt Date: 20200508
  Transmission Date: 20200714
  Serious: Yes (Other)
  Sender: FDA-Public Use
  Company Number: CA-SHIRE-CA201936259AA

PATIENT

DRUGS (3)
  1. NONACOG GAMMA [Suspect]
     Active Substance: COAGULATION FACTOR IX RECOMBINANT HUMAN
     Dosage: 8000 INTERNATIONAL UNIT, 2X/DAY:BID
     Route: 065
     Dates: start: 20191112
  2. NONACOG GAMMA [Suspect]
     Active Substance: COAGULATION FACTOR IX RECOMBINANT HUMAN
     Indication: FACTOR IX DEFICIENCY
     Dosage: 8000 INTERNATIONAL UNIT, 1X/DAY:QD
     Route: 065
     Dates: start: 20150101
  3. NONACOG GAMMA [Suspect]
     Active Substance: COAGULATION FACTOR IX RECOMBINANT HUMAN
     Indication: PROPHYLAXIS
     Dosage: 3000 INTERNATIONAL UNIT, UNKNOWN
     Route: 065
     Dates: start: 20190523

REACTIONS (9)
  - Wound [Not Recovered/Not Resolved]
  - Nausea [Unknown]
  - Ageusia [Not Recovered/Not Resolved]
  - Cough [Not Recovered/Not Resolved]
  - Insomnia [Unknown]
  - Anosmia [Not Recovered/Not Resolved]
  - Cerebrospinal fluid leakage [Unknown]
  - Wound secretion [Unknown]
  - Wound complication [Unknown]

NARRATIVE: CASE EVENT DATE: 201905
